FAERS Safety Report 10026650 (Version 2)
Quarter: 2014Q2

REPORT INFORMATION
  Report Type: Spontaneous
  Country: US (occurrence: US)
  Receive Date: 20140321
  Receipt Date: 20140421
  Transmission Date: 20141212
  Serious: Yes (Hospitalization)
  Sender: FDA-Public Use
  Company Number: US-UCBSA-114643

PATIENT
  Age: 56 Year
  Sex: Male
  Weight: 158.8 kg

DRUGS (1)
  1. CIMZIA [Suspect]
     Indication: CROHN^S DISEASE
     Route: 058
     Dates: start: 20090126

REACTIONS (2)
  - Cellulitis [Recovering/Resolving]
  - Abdominal infection [Recovered/Resolved]
